FAERS Safety Report 5072215-3 (Version None)
Quarter: 2006Q3

REPORT INFORMATION
  Report Type: 
  Country: None (occurrence: None)
  Receive Date: 20060710
  Receipt Date: 20060310
  Transmission Date: 20061208
  Serious: Yes (Other)
  Sender: FDA-Public Use
  Company Number: 2006US000364

PATIENT
  Age: 81 Year
  Sex: Male
  Weight: 83 kg

DRUGS (9)
  1. ADENOSCAN [Suspect]
     Indication: SCAN MYOCARDIAL PERFUSION
     Dosage: 69.6 MG, TOTAL DOSE, PARENTERAL
     Route: 051
     Dates: start: 20060124, end: 20060124
  2. MYOVIEW (ZINC CHLORIDE, TETROFOSMIN) [Concomitant]
  3. ZOLOFT [Concomitant]
  4. EXELON [Concomitant]
  5. PLAVIX [Concomitant]
  6. GINKGO BILOBA [Concomitant]
  7. CLORAZEPATE (CLORAZEPATE DIPOTASSIUM) [Concomitant]
  8. ZANTAC [Concomitant]
  9. VITAMINS [Concomitant]

REACTIONS (1)
  - BLOOD PRESSURE INCREASED [None]
